FAERS Safety Report 8550721 (Version 2)
Quarter: 2012Q4

REPORT INFORMATION
  Report Type: 
  Country: DE (occurrence: DE)
  Receive Date: 20120508
  Receipt Date: 20120913
  Transmission Date: 20130627
  Serious: Yes (Hospitalization, Other)
  Sender: FDA-Public Use
  Company Number: DE-AMGEN-DEUSP2012027062

PATIENT
  Age: 72 Year
  Sex: Male
  Weight: 90.5 kg

DRUGS (6)
  1. ENBREL [Suspect]
     Indication: RHEUMATOID ARTHRITIS
     Dosage: 25 mg, 2x/week
     Dates: start: 20080422
  2. ARCOXIA [Concomitant]
     Dosage: UNK
  3. ALLOPURINOL W/BENZBROMARONE [Concomitant]
     Dosage: UNK
  4. RAMIPRIL [Concomitant]
     Dosage: 5mg - 0 - 2mg
  5. FINASTERIDE [Concomitant]
     Dosage: 5 mg, UNK
  6. ALFUZOSIN [Concomitant]
     Dosage: 5 mg; UNK

REACTIONS (2)
  - Benign pancreatic neoplasm [Recovered/Resolved]
  - Nausea [Recovered/Resolved]
